FAERS Safety Report 5975537-4 (Version None)
Quarter: 2008Q4

REPORT INFORMATION
  Report Type: 
  Country: None (occurrence: None)
  Receive Date: 20081202
  Receipt Date: 20080923
  Transmission Date: 20090506
  Serious: Yes (Other)
  Sender: FDA-Public Use
  Company Number: A0748685A

PATIENT

DRUGS (1)
  1. AUGMENTIN '125' [Suspect]

REACTIONS (1)
  - CHOLESTASIS [None]
